FAERS Safety Report 6764299-9 (Version None)
Quarter: 2010Q2

REPORT INFORMATION
  Report Type: 
  Country: None (occurrence: None)
  Receive Date: 20100609
  Receipt Date: 20100526
  Transmission Date: 20101027
  Serious: Yes (Hospitalization)
  Sender: FDA-Public Use
  Company Number: 1000014257

PATIENT
  Age: 47 Year
  Sex: Male

DRUGS (3)
  1. ESCITALOPRAM [Suspect]
     Indication: MAJOR DEPRESSION
     Dosage: 5 MG (5 MG, 1 IN 1 D), ORAL
     Route: 048
     Dates: start: 20081001, end: 20100401
  2. ESCITALOPRAM [Suspect]
     Indication: MAJOR DEPRESSION
     Dosage: 20 MG (20 MG, 1 IN 1 D), ORAL
     Route: 048
     Dates: start: 20100401, end: 20100501
  3. ESCITALOPRAM [Suspect]
     Indication: MAJOR DEPRESSION
     Dosage: 10 MG(10 MG, 1 IN1 D),ORAL
     Route: 048
     Dates: start: 20100501

REACTIONS (2)
  - BLOOD CREATININE INCREASED [None]
  - EPILEPSY [None]
